FAERS Safety Report 23427027 (Version 1)
Quarter: 2024Q1

REPORT INFORMATION
  Report Type: Report from Study
  Country: IT (occurrence: IT)
  Receive Date: 20240122
  Receipt Date: 20240122
  Transmission Date: 20240410
  Serious: Yes (Other)
  Sender: FDA-Public Use
  Company Number: None

PATIENT
  Age: 66 Year
  Sex: Female

DRUGS (2)
  1. IRINOTECAN [Suspect]
     Active Substance: IRINOTECAN
     Indication: Colorectal neoplasm
     Dosage: 280 MG PER CYCLE
     Dates: start: 20221216, end: 20230417
  2. FLUOROURACIL [Suspect]
     Active Substance: FLUOROURACIL
     Indication: Colorectal neoplasm
     Dosage: 4.400 MG
     Dates: start: 20221216, end: 20230417

REACTIONS (7)
  - Oedema peripheral [Recovered/Resolved]
  - Constipation [Recovering/Resolving]
  - Pyrexia [Recovered/Resolved]
  - Abdominal pain upper [Recovering/Resolving]
  - Neutropenia [Recovered/Resolved]
  - Deep vein thrombosis [Recovered/Resolved]
  - Urinary incontinence [Recovering/Resolving]

NARRATIVE: CASE EVENT DATE: 20230101
